FAERS Safety Report 22015722 (Version 2)
Quarter: 2023Q1

REPORT INFORMATION
  Report Type: Spontaneous
  Country: JP (occurrence: JP)
  Receive Date: 20230221
  Receipt Date: 20230222
  Transmission Date: 20230417
  Serious: Yes (Hospitalization, Other)
  Sender: FDA-Public Use
  Company Number: JP-PFIZER INC-PV202300028745

PATIENT
  Age: 54 Year
  Sex: Female

DRUGS (5)
  1. IRINOTECAN HYDROCHLORIDE [Suspect]
     Active Substance: IRINOTECAN HYDROCHLORIDE
     Indication: Colorectal cancer
     Dosage: 100 MG/M2, CYCLIC (2-STEP DOSE REDUCTION)
  2. LEUCOVORIN CALCIUM [Suspect]
     Active Substance: LEUCOVORIN CALCIUM
     Indication: Colorectal cancer
     Dosage: 200 MG/M2, CYCLIC
  3. FLUOROURACIL [Suspect]
     Active Substance: FLUOROURACIL
     Indication: Colorectal cancer
     Dosage: 400 MG/M2, BOLUS
  4. FLUOROURACIL [Suspect]
     Active Substance: FLUOROURACIL
     Dosage: 2400 MG/M2, CI
  5. RAMUCIRUMAB [Suspect]
     Active Substance: RAMUCIRUMAB
     Indication: Colorectal cancer
     Dosage: 8 MG/KG, CYCLIC

REACTIONS (1)
  - Nephrotic syndrome [Recovered/Resolved]
